FAERS Safety Report 8484847-0 (Version None)
Quarter: 2012Q3

REPORT INFORMATION
  Report Type: 
  Country: None (occurrence: None)
  Receive Date: 20120703
  Receipt Date: 20120625
  Transmission Date: 20120928
  Serious: Yes (Hospitalization, Other)
  Sender: FDA-Public Use
  Company Number: US-JNJFOC-20120603695

PATIENT
  Sex: Male
  Weight: 99.79 kg

DRUGS (8)
  1. XARELTO [Suspect]
     Indication: THROMBOSIS PROPHYLAXIS
     Route: 048
     Dates: start: 20120529
  2. DOCUSATE [Concomitant]
     Route: 048
  3. XARELTO [Suspect]
     Indication: HIP ARTHROPLASTY
     Route: 048
     Dates: start: 20120529
  4. NAPROXEN [Suspect]
     Indication: ILL-DEFINED DISORDER
     Route: 048
  5. ACE INHIBITOR [Concomitant]
  6. ZOLPIDEM [Concomitant]
     Route: 048
  7. VICODIN [Concomitant]
     Route: 048
  8. OMEPRAZOLE [Concomitant]
     Route: 048

REACTIONS (2)
  - DUODENAL ULCER HAEMORRHAGE [None]
  - INFECTION [None]
